FAERS Safety Report 6647449-4 (Version None)
Quarter: 2010Q1

REPORT INFORMATION
  Report Type: 
  Country: None (occurrence: None)
  Receive Date: 20100323
  Receipt Date: 20100323
  Transmission Date: 20100710
  Serious: Yes (Other)
  Sender: FDA-Public Use
  Company Number: None

PATIENT
  Sex: Female
  Weight: 61.2356 kg

DRUGS (2)
  1. CEFDINIR [Suspect]
     Indication: INFLUENZA
     Dosage: 6ML TWICE DAILY WITHIN 24 HOURS
     Dates: start: 20100315, end: 20100316
  2. CEFDINIR [Suspect]
     Indication: VIRAL INFECTION
     Dosage: 6ML TWICE DAILY WITHIN 24 HOURS
     Dates: start: 20100315, end: 20100316

REACTIONS (2)
  - FACE OEDEMA [None]
  - RASH GENERALISED [None]
